FAERS Safety Report 6719175-4 (Version None)
Quarter: 2010Q2

REPORT INFORMATION
  Report Type: 
  Country: None (occurrence: None)
  Receive Date: 20100511
  Receipt Date: 20100504
  Transmission Date: 20101027
  Serious: Yes (Death, Other)
  Sender: FDA-Public Use
  Company Number: US-JNJFOC-20100205080

PATIENT
  Sex: Female
  Weight: 61.24 kg

DRUGS (13)
  1. NUCYNTA [Suspect]
     Indication: POSTOPERATIVE ANALGESIA
     Route: 048
  2. THERAPEUTIC DRUG [Suspect]
     Indication: DRUG USE FOR UNKNOWN INDICATION
     Route: 050
     Dates: end: 20100101
  3. METHADONE HCL [Suspect]
     Indication: PAIN
     Route: 065
  4. BUPROPION HCL [Suspect]
     Indication: ANXIETY
     Route: 065
  5. BUPROPION HCL [Suspect]
     Indication: DEPRESSION
     Route: 065
  6. PROZAC [Suspect]
     Indication: ANXIETY
     Route: 048
     Dates: end: 20100101
  7. PROZAC [Suspect]
     Indication: DEPRESSION
     Route: 048
     Dates: end: 20100101
  8. WELLBUTRIN [Concomitant]
     Indication: DRUG USE FOR UNKNOWN INDICATION
     Route: 048
     Dates: end: 20100101
  9. TRAZODONE [Concomitant]
     Indication: INSOMNIA
     Route: 048
     Dates: end: 20100101
  10. TRAZODONE [Concomitant]
     Indication: ANXIETY
     Route: 048
     Dates: end: 20100101
  11. TRAZODONE [Concomitant]
     Indication: DEPRESSION
     Route: 048
     Dates: end: 20100101
  12. SEROQUEL [Concomitant]
     Indication: DRUG USE FOR UNKNOWN INDICATION
     Route: 048
     Dates: end: 20100101
  13. PRAVASTATIN [Concomitant]
     Indication: DYSLIPIDAEMIA
     Route: 048

REACTIONS (3)
  - DISTURBANCE IN SOCIAL BEHAVIOUR [None]
  - DRUG TOXICITY [None]
  - UNRESPONSIVE TO STIMULI [None]
